FAERS Safety Report 16913162 (Version 1)
Quarter: 2019Q4

REPORT INFORMATION
  Report Type: Spontaneous
  Country: US (occurrence: US)
  Receive Date: 20191011
  Receipt Date: 20191011
  Transmission Date: 20200122
  Serious: Yes (Other)
  Sender: FDA-Public Use
  Company Number: None

PATIENT
  Age: 8 Year
  Sex: Male
  Weight: 27 kg

DRUGS (2)
  1. MIRALAX [Suspect]
     Active Substance: POLYETHYLENE GLYCOL 3350
     Indication: CONSTIPATION
     Dosage: ?          QUANTITY:1 POUCH;?
     Route: 048
     Dates: start: 20190920, end: 20191009
  2. MIRALAX [Suspect]
     Active Substance: POLYETHYLENE GLYCOL 3350
     Indication: FUNCTIONAL GASTROINTESTINAL DISORDER
     Dosage: ?          QUANTITY:1 POUCH;?
     Route: 048
     Dates: start: 20190920, end: 20191009

REACTIONS (4)
  - Mood swings [None]
  - Depression [None]
  - Anger [None]
  - Agitation [None]

NARRATIVE: CASE EVENT DATE: 20191001
